FAERS Safety Report 22119334 (Version 1)
Quarter: 2023Q1

REPORT INFORMATION
  Report Type: Spontaneous
  Country: US (occurrence: None)
  Receive Date: 20230320
  Receipt Date: 20230320
  Transmission Date: 20230418
  Serious: Yes (Hospitalization)
  Sender: FDA-Public Use
  Company Number: None

PATIENT
  Sex: Male

DRUGS (6)
  1. VIGABATRIN [Suspect]
     Active Substance: VIGABATRIN
     Indication: Lennox-Gastaut syndrome
     Dosage: FREQUENCY : DAILY;?OTHER ROUTE : VIA G-TUBE;?
     Route: 050
  2. VIGABATRIN [Suspect]
     Active Substance: VIGABATRIN
     Indication: Status epilepticus
  3. BACLOFEN [Concomitant]
     Active Substance: BACLOFEN
  4. CLOBAZAM [Concomitant]
     Active Substance: CLOBAZAM
  5. EPIDIOLEX [Concomitant]
     Active Substance: CANNABIDIOL
  6. VITAMINS [Concomitant]
     Active Substance: VITAMINS

REACTIONS (1)
  - Hospitalisation [None]
